FAERS Safety Report 18321079 (Version 1)
Quarter: 2020Q3

REPORT INFORMATION
  Report Type: Spontaneous
  Country: US (occurrence: US)
  Receive Date: 20200928
  Receipt Date: 20200928
  Transmission Date: 20201103
  Serious: No
  Sender: FDA-Public Use
  Company Number: US-BIOGEN-2020BI00928606

PATIENT
  Sex: Male

DRUGS (6)
  1. TYSABRI [Suspect]
     Active Substance: NATALIZUMAB
     Indication: MULTIPLE SCLEROSIS
     Route: 065
  2. GABAPENTIN. [Concomitant]
     Active Substance: GABAPENTIN
     Route: 065
  3. CLONAZEPAM. [Concomitant]
     Active Substance: CLONAZEPAM
     Route: 065
  4. PROPRANOL [Concomitant]
     Active Substance: PROPRANOLOL HYDROCHLORIDE
     Route: 065
  5. TAPAZOLE [Concomitant]
     Active Substance: METHIMAZOLE
     Route: 065
  6. TRIAZOLAM. [Concomitant]
     Active Substance: TRIAZOLAM
     Route: 065

REACTIONS (4)
  - Dizziness [Unknown]
  - Pruritus [Unknown]
  - Amnesia [Unknown]
  - Confusional state [Unknown]
